FAERS Safety Report 21628996 (Version 3)
Quarter: 2023Q1

REPORT INFORMATION
  Report Type: Spontaneous
  Country: US (occurrence: US)
  Receive Date: 20221122
  Receipt Date: 20230214
  Transmission Date: 20230417
  Serious: No
  Sender: FDA-Public Use
  Company Number: US-SA-SAC20221116000988

PATIENT
  Age: 4 Year
  Sex: Male

DRUGS (1)
  1. DUPIXENT [Suspect]
     Active Substance: DUPILUMAB
     Indication: Eczema
     Dosage: 300 MG, OTHER
     Route: 058
     Dates: start: 202207

REACTIONS (5)
  - Exfoliative rash [Unknown]
  - Swelling face [Unknown]
  - Eczema [Unknown]
  - Rash [Unknown]
  - Device use issue [Unknown]

NARRATIVE: CASE EVENT DATE: 20220701
